FAERS Safety Report 8983260 (Version 1)
Quarter: 2012Q4

REPORT INFORMATION
  Report Type: 
  Country: MX (occurrence: MX)
  Receive Date: 20121224
  Receipt Date: 20121224
  Transmission Date: 20130627
  Serious: Yes (Other)
  Sender: FDA-Public Use
  Company Number: PHHY2012MX118253

PATIENT
  Sex: Female

DRUGS (4)
  1. CO-DIOVAN [Suspect]
     Indication: HYPERTENSION
     Dosage: 1 DF (80/12.5 mg) aily
     Route: 048
     Dates: start: 200904
  2. TRILEPTAL [Suspect]
     Indication: EPILEPSY
     Dosage: 3 DF, daily
     Dates: start: 200904
  3. GALVUS [Suspect]
  4. METFORMIN [Concomitant]
     Indication: DIABETES MELLITUS
     Dosage: 2 DF, daily
     Dates: start: 200904

REACTIONS (4)
  - Hernia [Recovering/Resolving]
  - Ulcer [Recovering/Resolving]
  - Cholelithiasis [Recovering/Resolving]
  - Paraesthesia [Recovering/Resolving]
